FAERS Safety Report 5758260-0 (Version None)
Quarter: 2008Q2

REPORT INFORMATION
  Report Type: 
  Country: None (occurrence: None)
  Receive Date: 20080604
  Receipt Date: 20080523
  Transmission Date: 20081010
  Serious: Yes (Other)
  Sender: FDA-Public Use
  Company Number: HQWYE333222JUL04

PATIENT
  Sex: Female

DRUGS (7)
  1. PREMPRO [Suspect]
  2. PROVERA [Suspect]
  3. VAGIFEM [Suspect]
  4. MEDROXYPROGESTERONE [Suspect]
  5. ESTRING [Suspect]
  6. ESTRADERM [Suspect]
  7. NORETHINDRONE ACETATE [Suspect]

REACTIONS (1)
  - BREAST CANCER METASTATIC [None]
